FAERS Safety Report 6463819-1 (Version None)
Quarter: 2009Q4

REPORT INFORMATION
  Report Type: 
  Country: None (occurrence: None)
  Receive Date: 20091201
  Receipt Date: 20091120
  Transmission Date: 20100525
  Serious: Yes (Other)
  Sender: FDA-Public Use
  Company Number: JP-JNJFOC-20091107853

PATIENT
  Age: 57 Year
  Sex: Male

DRUGS (2)
  1. CRAVIT [Suspect]
     Indication: INFECTION PROPHYLAXIS
     Route: 048
     Dates: start: 20091004, end: 20091004
  2. TAMIFLU [Concomitant]
     Route: 065

REACTIONS (2)
  - URINARY RETENTION [None]
  - URTICARIA [None]
